FAERS Safety Report 14495109 (Version 1)
Quarter: 2018Q1

REPORT INFORMATION
  Report Type: Spontaneous
  Country: LB (occurrence: LB)
  Receive Date: 20180206
  Receipt Date: 20180206
  Transmission Date: 20180509
  Serious: Yes (Hospitalization)
  Sender: FDA-Public Use
  Company Number: LB-BIOMARINAP-LB-2018-116980

PATIENT
  Sex: Female
  Weight: 18.5 kg

DRUGS (1)
  1. ALDURAZYME [Suspect]
     Active Substance: LARONIDASE
     Indication: MUCOPOLYSACCHARIDOSIS I
     Dosage: UNK, QW
     Route: 041
     Dates: start: 2016, end: 2017

REACTIONS (1)
  - Hernia [Unknown]

NARRATIVE: CASE EVENT DATE: 2017
